FAERS Safety Report 10872065 (Version 1)
Quarter: 2015Q1

REPORT INFORMATION
  Report Type: Spontaneous
  Country: US (occurrence: None)
  Receive Date: 20150223
  Receipt Date: 20150223
  Transmission Date: 20150721
  Serious: No
  Sender: FDA-Public Use
  Company Number: None

PATIENT
  Age: 43 Year
  Sex: Male
  Weight: 58.97 kg

DRUGS (5)
  1. CLONAZEPAM. [Concomitant]
     Active Substance: CLONAZEPAM
  2. CITALOPRAM [Concomitant]
     Active Substance: CITALOPRAM HYDROBROMIDE
  3. AMITRIPTYLINE [Concomitant]
     Active Substance: AMITRIPTYLINE
  4. MORPHINE SULFATE. [Concomitant]
     Active Substance: MORPHINE SULFATE
  5. PRAZOSIN 1 MG MYLAN [Suspect]
     Active Substance: PRAZOSIN
     Indication: DRUG WITHDRAWAL SYNDROME
     Dosage: 2 CAPSULES TWICE DAILY TAKEN BY MOUTH
     Route: 048
     Dates: start: 20150217, end: 20150219

REACTIONS (3)
  - Hallucination, visual [None]
  - Agitation [None]
  - Aggression [None]

NARRATIVE: CASE EVENT DATE: 20150218
